FAERS Safety Report 4600529-7 (Version None)
Quarter: 2005Q1

REPORT INFORMATION
  Report Type: 
  Country: None (occurrence: None)
  Receive Date: 20050304
  Receipt Date: 20050222
  Transmission Date: 20050727
  Serious: Yes (Other)
  Sender: FDA-Public Use
  Company Number: 2005035732

PATIENT
  Age: 46 Year
  Sex: Female
  Weight: 74.8435 kg

DRUGS (5)
  1. CELEBREX [Suspect]
     Indication: OSTEOARTHRITIS
     Dosage: 400 MG (200 MG, 2 IN 1 D), ORAL
     Route: 048
  2. LEVOTHYROXINE SODIUM [Concomitant]
  3. SUCRALFATE [Concomitant]
  4. OMEPRAZOLE [Concomitant]
  5. IRON (IRON) [Concomitant]

REACTIONS (9)
  - ARTHRALGIA [None]
  - DISEASE RECURRENCE [None]
  - DRUG INEFFECTIVE [None]
  - GASTROINTESTINAL DISORDER [None]
  - INTESTINAL STENOSIS [None]
  - MOVEMENT DISORDER [None]
  - NEOPLASM [None]
  - SYNCOPE [None]
  - UTERINE LEIOMYOMA [None]
